FAERS Safety Report 14664948 (Version 1)
Quarter: 2018Q1

REPORT INFORMATION
  Report Type: Other
  Country: None (occurrence: US)
  Receive Date: 20180321
  Receipt Date: 20180321
  Transmission Date: 20180509
  Serious: Yes (Other)
  Sender: FDA-Public Use
  Company Number: US-GUTHY-RENKER, LLC-2044224

PATIENT
  Age: 35 Year
  Sex: Female

DRUGS (4)
  1. PRENATAL VITAMINS AND ALLERGY MEDICATIONS [Concomitant]
  2. MEANINGFUL BEAUTY CINDY CRAWFORD SKIN BRIGHTENING DECOLLETE AND NECK TREATMENT SPF 15 [Suspect]
     Active Substance: AVOBENZONE\OCTINOXATE\OCTISALATE\OXYBENZONE
     Indication: PROPHYLAXIS AGAINST SOLAR RADIATION
     Route: 061
     Dates: start: 20180308, end: 20180316
  3. MEANINGFUL BEAUTY CINDY CRAWFORD ANTIOXIDANT SPF 20 UVA/UVB [Suspect]
     Active Substance: AVOBENZONE\OCTINOXATE\OCTISALATE\OXYBENZONE
     Route: 061
     Dates: start: 20180308, end: 20180316
  4. MEANINGFUL BEAUTY DARK SPOT CORRECTING TREATMENT [Suspect]
     Active Substance: HYDROQUINONE
     Route: 061
     Dates: start: 20180308, end: 20180316

REACTIONS (9)
  - Headache [Recovering/Resolving]
  - Asthenia [None]
  - Feeling abnormal [None]
  - Dry skin [None]
  - Dizziness [None]
  - Vomiting [None]
  - Nausea [None]
  - Migraine [None]
  - Syncope [None]

NARRATIVE: CASE EVENT DATE: 20180310
